FAERS Safety Report 14285412 (Version 1)
Quarter: 2017Q4

REPORT INFORMATION
  Report Type: Spontaneous
  Country: US (occurrence: US)
  Receive Date: 20171214
  Receipt Date: 20171214
  Transmission Date: 20180321
  Serious: No
  Sender: FDA-Public Use
  Company Number: US-PFIZER INC-2017528794

PATIENT

DRUGS (1)
  1. EMBEDA [Suspect]
     Active Substance: MORPHINE SULFATE\NALTREXONE HYDROCHLORIDE
     Dosage: UNK (MORPHINE SULFATE 30 MG, NALTREXONE HYDROCHLORIDE 1.2 MG )

REACTIONS (2)
  - Product packaging quantity issue [Unknown]
  - Withdrawal syndrome [Unknown]
